APPROVED DRUG PRODUCT: ULTRACET
Active Ingredient: ACETAMINOPHEN; TRAMADOL HYDROCHLORIDE
Strength: 325MG;37.5MG **Federal Register determination that product was not discontinued or withdrawn for safety or effectiveness reasons**
Dosage Form/Route: TABLET;ORAL
Application: N021123 | Product #001
Applicant: JANSSEN PHARMACEUTICALS INC
Approved: Aug 15, 2001 | RLD: Yes | RS: No | Type: DISCN